FAERS Safety Report 13076303 (Version 3)
Quarter: 2019Q1

REPORT INFORMATION
  Report Type: Report from Study
  Country: NL (occurrence: NL)
  Receive Date: 20161230
  Receipt Date: 20190315
  Transmission Date: 20190417
  Serious: Yes (Death, Hospitalization)
  Sender: FDA-Public Use
  Company Number: NL-ROCHE-1864118

PATIENT
  Age: 75 Year
  Sex: Female
  Weight: 51 kg

DRUGS (22)
  1. MOVICOLON [Concomitant]
     Active Substance: POLYETHYLENE GLYCOL 3350\POTASSIUM CHLORIDE\SODIUM BICARBONATE\SODIUM CHLORIDE
     Indication: CONSTIPATION PROPHYLAXIS
     Route: 048
     Dates: start: 20141021, end: 20161101
  2. PARACETAMOL [Concomitant]
     Active Substance: ACETAMINOPHEN
     Route: 048
     Dates: start: 20161208
  3. CODEINE [Concomitant]
     Active Substance: CODEINE
     Indication: COUGH
     Route: 048
     Dates: start: 20151029
  4. FRAXIPARINE [Concomitant]
     Active Substance: NADROPARIN CALCIUM
     Indication: THROMBOSIS PROPHYLAXIS
     Route: 058
     Dates: start: 20161202, end: 20161209
  5. HALDOL [Concomitant]
     Active Substance: HALOPERIDOL
     Dosage: FOR DELIER
     Route: 048
     Dates: start: 20161216
  6. METOPROLOL SUCCINATE. [Concomitant]
     Active Substance: METOPROLOL SUCCINATE
     Indication: HYPERTENSION
     Route: 048
     Dates: start: 20141019
  7. DIGOXINE [Concomitant]
     Active Substance: DIGOXIN
     Indication: ATRIAL FIBRILLATION
     Route: 048
     Dates: start: 20141106
  8. FUROSEMIDE. [Concomitant]
     Active Substance: FUROSEMIDE
     Indication: DYSPNOEA
     Route: 048
     Dates: start: 20160912, end: 20161202
  9. AMIODARONE [Concomitant]
     Active Substance: AMIODARONE
     Indication: ATRIAL FIBRILLATION
     Route: 048
     Dates: start: 20161210, end: 20161216
  10. ACENOCOUMAROL [Concomitant]
     Active Substance: ACENOCOUMAROL
     Indication: ATRIAL FIBRILLATION
     Route: 048
     Dates: start: 20150402
  11. FUROSEMIDE. [Concomitant]
     Active Substance: FUROSEMIDE
     Route: 048
     Dates: start: 20161202
  12. ALBUMINE [Concomitant]
     Active Substance: ALBUMIN HUMAN
     Indication: HYPOTENSION
     Route: 042
     Dates: start: 20161211, end: 20161212
  13. PACKED CELLS [Concomitant]
     Active Substance: CELLS, NOS
     Indication: ANAEMIA
     Dosage: 1 UNIT
     Route: 042
     Dates: start: 20161223, end: 20161223
  14. ATEZOLIZUMAB. [Suspect]
     Active Substance: ATEZOLIZUMAB
     Indication: NON-SMALL CELL LUNG CANCER
     Dosage: DATE OF MOST RECENT DOSE PRIOR TO THE EVENT WAS ON 16/NOV/2016.
     Route: 042
     Dates: start: 20141017
  15. ACENOCOUMAROL [Concomitant]
     Active Substance: ACENOCOUMAROL
     Route: 048
     Dates: start: 20161208
  16. FLOXAPEN [Concomitant]
     Active Substance: FLUCLOXACILLIN
     Indication: BLOOD CULTURE POSITIVE
     Route: 042
     Dates: start: 20161209, end: 20161221
  17. FRAXIPARINE [Concomitant]
     Active Substance: NADROPARIN CALCIUM
     Route: 058
     Dates: start: 20161212
  18. PREDNISON [Concomitant]
     Active Substance: PREDNISONE
     Indication: SEPSIS
     Route: 042
     Dates: start: 20161214, end: 20161221
  19. LANOXIN [Concomitant]
     Active Substance: DIGOXIN
     Indication: HYPOTENSION
     Route: 048
     Dates: start: 20161216
  20. CEFUROXIM [Concomitant]
     Active Substance: CEFUROXIME
     Indication: SEPSIS
     Route: 042
     Dates: start: 20161221
  21. CIPROFLOXACINE [Concomitant]
     Active Substance: CIPROFLOXACIN
     Indication: SEPSIS
     Route: 048
     Dates: start: 20161215, end: 20161219
  22. NORADRENALINE [Concomitant]
     Active Substance: NOREPINEPHRINE
     Indication: SEPSIS
     Dosage: 12 OTHER
     Route: 042
     Dates: start: 20161208, end: 20161216

REACTIONS (1)
  - Diarrhoea [Not Recovered/Not Resolved]

NARRATIVE: CASE EVENT DATE: 20161122
